FAERS Safety Report 9612416 (Version 1)
Quarter: 2013Q4

REPORT INFORMATION
  Report Type: Spontaneous
  Country: GB (occurrence: GB)
  Receive Date: 20131010
  Receipt Date: 20131010
  Transmission Date: 20140711
  Serious: Yes (Death, Life-Threatening, Hospitalization)
  Sender: FDA-Public Use
  Company Number: GB-PFIZER INC-2013287927

PATIENT
  Age: 80 Year
  Sex: Male

DRUGS (9)
  1. MITOXANTRONE HCL [Suspect]
     Indication: ACUTE MYELOID LEUKAEMIA
     Dosage: 12 MG (2 TOTAL)
     Route: 042
     Dates: start: 20120911, end: 20120928
  2. MITOXANTRONE HCL [Suspect]
     Indication: PALLIATIVE CARE
  3. ALLOPURINOL [Concomitant]
     Dosage: 300 MG, 1X/DAY
  4. ASPIRIN [Concomitant]
     Indication: CEREBROVASCULAR ACCIDENT
     Dosage: 300MG (1TOTAL)
     Dates: start: 20120907, end: 20120907
  5. FELODIPINE [Concomitant]
     Indication: HYPERTENSION
     Dosage: 2.5 MG, 1X/DAY
     Dates: end: 20121002
  6. FLUCLOXACILLIN [Concomitant]
     Indication: INFECTION
     Dosage: 500 G, 4X/DAY
     Route: 048
     Dates: start: 20120912, end: 20120917
  7. LISINOPRIL [Concomitant]
     Indication: HYPERTENSION
     Dosage: 20 MG, 1X/DAY
     Dates: end: 20120910
  8. ONDANSETRON [Concomitant]
     Dosage: 8 MG, UNK
     Route: 042
     Dates: start: 20120928
  9. SIMVASTATIN [Concomitant]
     Dosage: 40 MG, 1X/DAY
     Dates: start: 20120908

REACTIONS (11)
  - Tumour lysis syndrome [Fatal]
  - Renal failure [Fatal]
  - Acidosis [Not Recovered/Not Resolved]
  - Anaemia [Not Recovered/Not Resolved]
  - Atrial fibrillation [Not Recovered/Not Resolved]
  - Dyspnoea [Not Recovered/Not Resolved]
  - Fluid overload [Not Recovered/Not Resolved]
  - Hyperkalaemia [Not Recovered/Not Resolved]
  - Anuria [Not Recovered/Not Resolved]
  - Pulmonary oedema [Not Recovered/Not Resolved]
  - Local swelling [Not Recovered/Not Resolved]
